FAERS Safety Report 9134472 (Version 1)
Quarter: 2013Q1

REPORT INFORMATION
  Report Type: Spontaneous
  Country: CA (occurrence: CA)
  Receive Date: 20130304
  Receipt Date: 20130304
  Transmission Date: 20140127
  Serious: Yes (Death)
  Sender: FDA-Public Use
  Company Number: CA-BRISTOL-MYERS SQUIBB COMPANY-17416884

PATIENT
  Age: 68 Year
  Sex: Male

DRUGS (1)
  1. YERVOY [Suspect]
     Route: 042
     Dates: start: 20120914

REACTIONS (1)
  - Death [Fatal]
